FAERS Safety Report 17514407 (Version 1)
Quarter: 2020Q1

REPORT INFORMATION
  Report Type: Spontaneous
  Country: US (occurrence: US)
  Receive Date: 20200309
  Receipt Date: 20200309
  Transmission Date: 20200409
  Serious: No
  Sender: FDA-Public Use
  Company Number: US-ACCORD-122252

PATIENT
  Age: 79 Year
  Sex: Female
  Weight: 102.06 kg

DRUGS (4)
  1. PIOGLITAZONE ACCORD [Suspect]
     Active Substance: PIOGLITAZONE
     Indication: TYPE 2 DIABETES MELLITUS
     Dosage: DOSE: 30 MG ONCE A DAY
     Route: 048
     Dates: start: 20190408
  2. CANDESARTAN. [Concomitant]
     Active Substance: CANDESARTAN
  3. CLARITIN [Concomitant]
     Active Substance: LORATADINE
  4. DETROL LA [Concomitant]
     Active Substance: TOLTERODINE TARTRATE

REACTIONS (1)
  - Dizziness [Recovered/Resolved]

NARRATIVE: CASE EVENT DATE: 20190410
